FAERS Safety Report 17391665 (Version 1)
Quarter: 2020Q1

REPORT INFORMATION
  Report Type: Spontaneous
  Country: US (occurrence: US)
  Receive Date: 20200207
  Receipt Date: 20200207
  Transmission Date: 20200409
  Serious: No
  Sender: FDA-Public Use
  Company Number: US-LUPIN PHARMACEUTICALS INC.-2019-07364

PATIENT
  Age: 78 Year
  Sex: Female
  Weight: 68.03 kg

DRUGS (2)
  1. LEVOTHYROXINE SODIUM TABLETS USP, 100 MCG [Suspect]
     Active Substance: LEVOTHYROXINE SODIUM
     Indication: THYROID DISORDER
     Dosage: 200 MILLIGRAM, QD
     Route: 048
     Dates: start: 20190723
  2. MELATONIN [Concomitant]
     Active Substance: MELATONIN
     Indication: INSOMNIA
     Dosage: UNK
     Route: 065

REACTIONS (8)
  - Palpitations [Unknown]
  - Headache [Unknown]
  - Product substitution issue [Unknown]
  - Abdominal distension [Unknown]
  - Insomnia [Not Recovered/Not Resolved]
  - Myalgia [Not Recovered/Not Resolved]
  - Alopecia [Not Recovered/Not Resolved]
  - Weight increased [Unknown]

NARRATIVE: CASE EVENT DATE: 20190723
